FAERS Safety Report 22176682 (Version 2)
Quarter: 2023Q2

REPORT INFORMATION
  Report Type: Spontaneous
  Country: US (occurrence: US)
  Receive Date: 20230405
  Receipt Date: 20230419
  Transmission Date: 20230721
  Serious: No
  Sender: FDA-Public Use
  Company Number: US-SA-SAC20230403001534

PATIENT
  Sex: Female
  Weight: 79.378 kg

DRUGS (1)
  1. DUPIXENT [Suspect]
     Active Substance: DUPILUMAB
     Indication: Eosinophilic oesophagitis
     Dosage: 300 MG
     Route: 058
     Dates: start: 20221205, end: 20230310

REACTIONS (3)
  - Fatigue [Unknown]
  - Persistent depressive disorder [Unknown]
  - Injection site irritation [Unknown]
